FAERS Safety Report 5960112-8 (Version None)
Quarter: 2008Q4

REPORT INFORMATION
  Report Type: 
  Country: None (occurrence: None)
  Receive Date: 20081110
  Receipt Date: 20080922
  Transmission Date: 20090506
  Serious: No
  Sender: FDA-Public Use
  Company Number: 2008US002396

PATIENT
  Age: 32 Year
  Sex: Male

DRUGS (1)
  1. LEXISCAN [Suspect]
     Indication: SCAN MYOCARDIAL PERFUSION
     Dosage: 0.4 MG
     Dates: start: 20080822, end: 20080822

REACTIONS (1)
  - ELECTROCARDIOGRAM T WAVE INVERSION [None]
